FAERS Safety Report 8888558 (Version 5)
Quarter: 2013Q2

REPORT INFORMATION
  Report Type: Spontaneous
  Country: US (occurrence: US)
  Receive Date: 20121106
  Receipt Date: 20130501
  Transmission Date: 20140414
  Serious: Yes (Other)
  Sender: FDA-Public Use
  Company Number: US-ASTRAZENECA-2012SE80845

PATIENT
  Age: 75 Year
  Sex: Female

DRUGS (2)
  1. VIMOVO [Suspect]
     Indication: RHEUMATOID ARTHRITIS
     Route: 048
  2. CRESTOR [Suspect]
     Route: 048

REACTIONS (3)
  - Tendon injury [Unknown]
  - Activities of daily living impaired [Unknown]
  - Blood cholesterol abnormal [Unknown]
